FAERS Safety Report 5053808-6 (Version None)
Quarter: 2006Q3

REPORT INFORMATION
  Report Type: 
  Country: None (occurrence: None)
  Receive Date: 20060718
  Receipt Date: 20060512
  Transmission Date: 20061208
  Serious: Yes (Other)
  Sender: FDA-Public Use
  Company Number: S2006US02300

PATIENT
  Sex: Male
  Weight: 3.4 kg

DRUGS (9)
  1. ACYCLOVIR [Suspect]
     Dosage: 400MG TWICE PER DAY
     Dates: start: 20060222, end: 20060320
  2. PAXIL [Suspect]
     Dosage: 10MG PER DAY
  3. SYNTHROID [Concomitant]
  4. CLONAZEPAM [Concomitant]
     Dosage: .5MG THREE TIMES PER DAY
     Dates: start: 20051219, end: 20051222
  5. FAMCICLOVIR [Concomitant]
     Dosage: 250MG TWICE PER DAY
     Dates: start: 20060208, end: 20060222
  6. MULTIVITAMIN W/OUT IRON [Concomitant]
     Dosage: 1TAB PER DAY
     Dates: start: 20050601
  7. CHINESE HERBS [Concomitant]
     Dates: start: 20050601
  8. FOLIC ACID [Concomitant]
     Dates: start: 20050601
  9. HERBAL TEA [Concomitant]
     Indication: PREGNANCY
     Dosage: 2CUP PER DAY
     Dates: start: 20050601

REACTIONS (2)
  - DRUG EXPOSURE DURING PREGNANCY [None]
  - RESPIRATORY DISORDER [None]
